FAERS Safety Report 8174219-0 (Version None)
Quarter: 2012Q1

REPORT INFORMATION
  Report Type: 
  Country: None (occurrence: None)
  Receive Date: 20120224
  Receipt Date: 20120214
  Transmission Date: 20120608
  Serious: Yes (Other)
  Sender: FDA-Public Use
  Company Number: 1200346

PATIENT
  Age: 11 Year
  Sex: Female

DRUGS (3)
  1. VINCRISTINE SULFATE [Suspect]
     Indication: ACUTE LYMPHOCYTIC LEUKAEMIA
  2. PIPERACILLIN AND TAZOBACTAM [Suspect]
     Indication: FEBRILE NEUTROPENIA
  3. CHEMOTHERAPEUTICS [Concomitant]

REACTIONS (4)
  - DRUG INTERACTION [None]
  - CHOLESTASIS [None]
  - AUTONOMIC NEUROPATHY [None]
  - INTESTINAL OBSTRUCTION [None]
